FAERS Safety Report 17829618 (Version 1)
Quarter: 2020Q2

REPORT INFORMATION
  Report Type: Spontaneous
  Country: US (occurrence: US)
  Receive Date: 20200527
  Receipt Date: 20200527
  Transmission Date: 20200714
  Serious: Yes (Death)
  Sender: FDA-Public Use
  Company Number: US-PFIZER INC-2019053850

PATIENT
  Age: 37 Year
  Sex: Male
  Weight: 104.33 kg

DRUGS (2)
  1. REVATIO [Suspect]
     Active Substance: SILDENAFIL CITRATE
     Indication: PULMONARY ARTERIAL HYPERTENSION
     Dosage: 60 MG, 3X/DAY (EVERY 8 HRS)
     Route: 048
  2. REVATIO [Suspect]
     Active Substance: SILDENAFIL CITRATE
     Indication: HEART TRANSPLANT

REACTIONS (5)
  - Off label use [Unknown]
  - Myocardial infarction [Fatal]
  - Product use issue [Unknown]
  - Product dose omission [Unknown]
  - Prescribed overdose [Unknown]
